FAERS Safety Report 7163831-3 (Version None)
Quarter: 2010Q4

REPORT INFORMATION
  Report Type: 
  Country: None (occurrence: None)
  Receive Date: 20101215
  Receipt Date: 20100622
  Transmission Date: 20110411
  Serious: Yes (Disabling)
  Sender: FDA-Public Use
  Company Number: FR-PFIZER INC-2010077457

PATIENT
  Age: 76 Year
  Sex: Male

DRUGS (16)
  1. LYRICA [Suspect]
     Indication: NEURALGIA
     Dosage: UNK
     Route: 048
     Dates: end: 20100301
  2. NEURONTIN [Suspect]
     Indication: NEURALGIA
     Dosage: UNK
     Route: 048
     Dates: end: 20100501
  3. VASTAREL [Suspect]
     Indication: VERTIGO
     Dosage: 35 MG, 2X/DAY
     Route: 048
     Dates: start: 20070101, end: 20100217
  4. FONZYLANE [Concomitant]
     Dosage: 150 MG, UNK
  5. NOVOMIX [Concomitant]
     Dosage: UNK
  6. PLAVIX [Concomitant]
     Dosage: UNK
  7. PRETERAX [Concomitant]
     Dosage: UNK
  8. GLUCOPHAGE [Concomitant]
     Dosage: 850 MG, UNK
  9. HYPERIUM [Concomitant]
     Dosage: UNK
  10. NORSET [Concomitant]
     Dosage: 15 MG, DAILY
  11. URBANYL [Concomitant]
     Dosage: 10 MG, DAILY
  12. LECTIL [Concomitant]
     Dosage: 16 MG, UNK
  13. IMODIUM [Concomitant]
     Dosage: UNK
  14. IMOVANE [Concomitant]
     Dosage: 7.5 MG, UNK
  15. LEXOMIL ROCHE [Concomitant]
     Dosage: UNK
  16. LAROXYL ROCHE [Concomitant]
     Dosage: UNK

REACTIONS (1)
  - PARKINSONISM [None]
